FAERS Safety Report 9525715 (Version 3)
Quarter: 2014Q2

REPORT INFORMATION
  Report Type: Report from Study
  Country: CA (occurrence: CA)
  Receive Date: 20130916
  Receipt Date: 20140602
  Transmission Date: 20141212
  Serious: Yes (Other)
  Sender: FDA-Public Use
  Company Number: CA-GILEAD-2013-0083402

PATIENT
  Age: 35 Year
  Sex: Female
  Weight: 113.8 kg

DRUGS (10)
  1. AMBRISENTAN [Suspect]
     Indication: PULMONARY ARTERIAL HYPERTENSION
     Dosage: UNK UNK, QD
     Route: 048
     Dates: start: 20111202
  2. TADALAFIL [Suspect]
     Indication: PULMONARY ARTERIAL HYPERTENSION
     Dosage: UNK, QD
     Route: 048
     Dates: start: 20111202
  3. SALINE                             /00075401/ [Concomitant]
     Indication: SINUSITIS
     Dosage: 1BT PER DAY
     Dates: start: 201211
  4. AZITHROMYCIN [Concomitant]
     Indication: SINUSITIS
     Dosage: 250MG PER DAY
     Route: 048
     Dates: start: 20130622, end: 20130627
  5. VENTOLIN                           /00139502/ [Concomitant]
     Indication: SINUSITIS
     Dosage: 100MCG FOUR TIMES PER DAY
     Dates: start: 20130622, end: 20130627
  6. LASIX                              /00032601/ [Concomitant]
     Indication: OEDEMA PERIPHERAL
     Dosage: 20MG PER DAY
     Route: 048
     Dates: start: 20111116
  7. SYMBICORT [Concomitant]
     Indication: ASTHMA
     Dosage: 2PUFF TWICE PER DAY
     Dates: start: 20111130
  8. TYLENOL                            /00020001/ [Concomitant]
     Indication: HEADACHE
     Dates: start: 20111206
  9. ALPRAZOLAM [Concomitant]
     Indication: ANXIETY
     Dosage: .5MG THREE TIMES PER DAY
     Route: 048
     Dates: start: 201110
  10. PANTOPRAZOLE [Concomitant]
     Indication: DYSPEPSIA
     Dosage: 40MG AS REQUIRED
     Dates: start: 20120130

REACTIONS (1)
  - Exposure during pregnancy [Unknown]
